FAERS Safety Report 16420522 (Version 1)
Quarter: 2019Q2

REPORT INFORMATION
  Report Type: Spontaneous
  Country: US (occurrence: US)
  Receive Date: 20190612
  Receipt Date: 20190612
  Transmission Date: 20190711
  Serious: Yes (Other)
  Sender: FDA-Public Use
  Company Number: US-AMGEN-USASP2019090746

PATIENT
  Age: 81 Year
  Sex: Female

DRUGS (1)
  1. PROLIA [Suspect]
     Active Substance: DENOSUMAB
     Indication: OSTEOPOROSIS POSTMENOPAUSAL
     Dosage: 60 MILLIGRAM, UNK
     Route: 065
     Dates: start: 2017

REACTIONS (6)
  - Gingival bleeding [Unknown]
  - Erythema [Unknown]
  - Skin lesion [Unknown]
  - Pruritus [Unknown]
  - Fall [Unknown]
  - Rib fracture [Unknown]

NARRATIVE: CASE EVENT DATE: 201904
